FAERS Safety Report 14240452 (Version 1)
Quarter: 2017Q4

REPORT INFORMATION
  Report Type: Report from Study
  Country: AU (occurrence: AU)
  Receive Date: 20171130
  Receipt Date: 20171130
  Transmission Date: 20180321
  Serious: Yes (Hospitalization)
  Sender: FDA-Public Use
  Company Number: AU-PFIZER INC-2005086991

PATIENT
  Age: 66 Year
  Sex: Male

DRUGS (5)
  1. ALLOPURINOL. [Concomitant]
     Active Substance: ALLOPURINOL
  2. LUCRIN [Concomitant]
     Active Substance: LEUPROLIDE ACETATE
     Dates: start: 20040726
  3. PERINDOPRIL [Concomitant]
     Active Substance: PERINDOPRIL
  4. ASPIRIN /00002701/ [Concomitant]
     Active Substance: ASPIRIN
  5. MINIDIAB [Suspect]
     Active Substance: GLIPIZIDE
     Indication: DIABETES MELLITUS
     Dates: end: 20050318

REACTIONS (2)
  - Hypoglycaemia [Recovered/Resolved]
  - Urinary retention [Recovered/Resolved]

NARRATIVE: CASE EVENT DATE: 20050317
